FAERS Safety Report 5846967-6 (Version None)
Quarter: 2008Q3

REPORT INFORMATION
  Report Type: 
  Country: None (occurrence: None)
  Receive Date: 20080815
  Receipt Date: 20080805
  Transmission Date: 20090109
  Serious: Yes (Other)
  Sender: FDA-Public Use
  Company Number: US-JNJCH-2008020438

PATIENT
  Age: 61 Year
  Sex: Male

DRUGS (2)
  1. LISTERINE WHITENING PRE-BRUSH RINSE [Suspect]
     Indication: DENTAL CARE
     Dosage: TEXT:UNSPECIFIED, TWICE DAILY
     Route: 048
     Dates: start: 20070801, end: 20080801
  2. NARDIL [Concomitant]
     Indication: DEPRESSION
     Dosage: TEXT:15MG/3XX
     Route: 065

REACTIONS (3)
  - APPLICATION SITE IRRITATION [None]
  - MOUTH HAEMORRHAGE [None]
  - ORAL MUCOSAL EXFOLIATION [None]
